FAERS Safety Report 21842450 (Version 1)
Quarter: 2023Q1

REPORT INFORMATION
  Report Type: Spontaneous
  Country: US (occurrence: None)
  Receive Date: 20230109
  Receipt Date: 20230109
  Transmission Date: 20230417
  Serious: Yes (Other)
  Sender: FDA-Public Use
  Company Number: None

PATIENT
  Age: 49 Year
  Sex: Male
  Weight: 63.5 kg

DRUGS (1)
  1. AJOVY [Suspect]
     Active Substance: FREMANEZUMAB-VFRM
     Indication: Migraine
     Dosage: OTHER QUANTITY : 225/1.5  MG/ML;?OTHER FREQUENCY : Q 28 DAYS;?
     Route: 058
     Dates: start: 20220414, end: 20220713

REACTIONS (2)
  - Injection site bruising [None]
  - Therapy cessation [None]

NARRATIVE: CASE EVENT DATE: 20220712
